FAERS Safety Report 15283117 (Version 2)
Quarter: 2018Q3

REPORT INFORMATION
  Report Type: Spontaneous
  Country: IN (occurrence: IN)
  Receive Date: 20180816
  Receipt Date: 20180831
  Transmission Date: 20181010
  Serious: Yes (Hospitalization, Other)
  Sender: FDA-Public Use
  Company Number: IN-LUPIN PHARMACEUTICALS INC.-2018-05829

PATIENT
  Age: 78 Year
  Sex: Female

DRUGS (1)
  1. SERTRALINE [Suspect]
     Active Substance: SERTRALINE HYDROCHLORIDE
     Indication: MAJOR DEPRESSION
     Dosage: 50 MG, QD
     Route: 065

REACTIONS (3)
  - Toxicity to various agents [Recovered/Resolved]
  - Cystoid macular oedema [Recovered/Resolved with Sequelae]
  - Subretinal fluid [Recovered/Resolved]
